FAERS Safety Report 17402517 (Version 3)
Quarter: 2020Q1

REPORT INFORMATION
  Report Type: Spontaneous
  Country: US (occurrence: US)
  Receive Date: 20200211
  Receipt Date: 20200326
  Transmission Date: 20200409
  Serious: No
  Sender: FDA-Public Use
  Company Number: US-PFIZER INC-2020058576

PATIENT
  Age: 57 Year

DRUGS (2)
  1. DILANTIN [Suspect]
     Active Substance: PHENYTOIN
     Dosage: 120 MG, DAILY (QUANTITY FOR 90 DAYS: 360)
  2. DILANTIN [Suspect]
     Active Substance: PHENYTOIN
     Dosage: 400 MG, DAILY (QUANTITY FOR 90 DAYS: 360)

REACTIONS (1)
  - Head discomfort [Unknown]
